APPROVED DRUG PRODUCT: MITOMYCIN
Active Ingredient: MITOMYCIN
Strength: 40MG/VIAL
Dosage Form/Route: INJECTABLE;INJECTION
Application: A216732 | Product #003
Applicant: EUGIA PHARMA SPECIALITIES LTD
Approved: Oct 30, 2023 | RLD: No | RS: No | Type: DISCN